FAERS Safety Report 24416861 (Version 3)
Quarter: 2025Q2

REPORT INFORMATION
  Report Type: Report from Study
  Country: IN (occurrence: IN)
  Receive Date: 20241009
  Receipt Date: 20250625
  Transmission Date: 20250716
  Serious: Yes (Other)
  Sender: NOVARTIS
  Company Number: IN-002147023-NVSC2024IN198597

PATIENT
  Sex: Female

DRUGS (1)
  1. RIBOCICLIB [Suspect]
     Active Substance: RIBOCICLIB
     Indication: Breast cancer metastatic
     Dosage: 600 MG, QD
     Route: 048
     Dates: start: 20230831

REACTIONS (11)
  - Pneumonia [Unknown]
  - Electrocardiogram QT prolonged [Unknown]
  - Pulmonary mass [Unknown]
  - Productive cough [Recovering/Resolving]
  - Haemoglobin abnormal [Unknown]
  - Mean cell volume abnormal [Unknown]
  - White blood cell count abnormal [Unknown]
  - Platelet count abnormal [Unknown]
  - Blood alkaline phosphatase abnormal [Unknown]
  - Blood albumin abnormal [Unknown]
  - Urine albumin/creatinine ratio abnormal [Unknown]

NARRATIVE: CASE EVENT DATE: 20250330
